FAERS Safety Report 17717356 (Version 9)
Quarter: 2022Q4

REPORT INFORMATION
  Report Type: Spontaneous
  Country: US (occurrence: US)
  Receive Date: 20200428
  Receipt Date: 20221110
  Transmission Date: 20230113
  Serious: Yes (Other)
  Sender: FDA-Public Use
  Company Number: US-PFIZER INC-2020167259

PATIENT
  Age: 46 Year
  Sex: Female
  Weight: 112.01 kg

DRUGS (14)
  1. IBRANCE [Suspect]
     Active Substance: PALBOCICLIB
     Indication: Breast cancer metastatic
     Dosage: 1 DAILY FOR 21 DAYS
     Dates: start: 20191228
  2. IBRANCE [Suspect]
     Active Substance: PALBOCICLIB
     Dosage: 1 DAILY FOR 21 DAYS
     Route: 048
     Dates: start: 20200124
  3. IBRANCE [Suspect]
     Active Substance: PALBOCICLIB
     Dosage: 1 DAILY FOR 21 DAYS
     Route: 048
     Dates: start: 20200124, end: 20221104
  4. FASLODEX [Suspect]
     Active Substance: FULVESTRANT
     Indication: Breast cancer metastatic
     Dosage: 250 MG
     Dates: start: 20191228, end: 20221104
  5. XGEVA [Suspect]
     Active Substance: DENOSUMAB
     Indication: Breast cancer metastatic
     Dosage: 120 MG
     Dates: start: 20191228, end: 20221104
  6. ASPIRIN [Concomitant]
     Active Substance: ASPIRIN
     Dosage: 325 MG
  7. BIOTIN [Concomitant]
     Active Substance: BIOTIN
     Dosage: 2500 MC
  8. CALCIUM CARBONATE [Concomitant]
     Active Substance: CALCIUM CARBONATE
     Dosage: UNK
  9. FLONASE SENSIMIST ALLERGY RELIEF [Concomitant]
     Active Substance: FLUTICASONE FUROATE
     Dosage: 27.5 MC
  10. MAGNESIUM [Concomitant]
     Active Substance: MAGNESIUM
     Dosage: 300 MG
  11. VITAMIN D3 [Concomitant]
     Active Substance: CHOLECALCIFEROL
     Dosage: 25 UG
  12. ZYRTEC [Concomitant]
     Active Substance: CETIRIZINE HYDROCHLORIDE
     Dosage: 10 MG
  13. ADVIL [Concomitant]
     Active Substance: IBUPROFEN
     Dosage: UNK
  14. TYLENOL PM EXTRA STRENGTH [Concomitant]
     Active Substance: ACETAMINOPHEN\DIPHENHYDRAMINE HYDROCHLORIDE
     Dosage: UNK

REACTIONS (18)
  - Deafness [Unknown]
  - Alopecia [Recovering/Resolving]
  - Muscular weakness [Recovering/Resolving]
  - Tendon disorder [Recovering/Resolving]
  - Trigger finger [Recovering/Resolving]
  - Disease recurrence [Recovering/Resolving]
  - Arthritis [Unknown]
  - Back pain [Unknown]
  - Spondylitis [Unknown]
  - Neoplasm progression [Unknown]
  - White blood cell count decreased [Unknown]
  - Muscle spasms [Unknown]
  - Anxiety [Unknown]
  - Alopecia [Unknown]
  - Vertigo [Unknown]
  - Condition aggravated [Unknown]
  - Limb discomfort [Unknown]
  - Rash [Not Recovered/Not Resolved]

NARRATIVE: CASE EVENT DATE: 20200101
